FAERS Safety Report 24919864 (Version 2)
Quarter: 2025Q1

REPORT INFORMATION
  Report Type: Spontaneous
  Country: US (occurrence: US)
  Receive Date: 20250204
  Receipt Date: 20250214
  Transmission Date: 20250409
  Serious: Yes (Other)
  Sender: ALEXION PHARMACEUTICALS
  Company Number: US-AstraZeneca-CH-00797840A

PATIENT

DRUGS (1)
  1. TAGRISSO [Suspect]
     Active Substance: OSIMERTINIB
     Route: 065

REACTIONS (14)
  - Metastases to central nervous system [Unknown]
  - Neoplasm malignant [Unknown]
  - COVID-19 [Recovered/Resolved]
  - Trichorrhexis [Unknown]
  - Weight decreased [Unknown]
  - Allergy to chemicals [Unknown]
  - Glomerular filtration rate decreased [Unknown]
  - Disorientation [Unknown]
  - Dysuria [Not Recovered/Not Resolved]
  - Onychomalacia [Unknown]
  - Nausea [Recovered/Resolved]
  - Thyroid disorder [Unknown]
  - Diverticulitis [Unknown]
  - Nail ridging [Unknown]
